FAERS Safety Report 8993280 (Version 1)
Quarter: 2013Q1

REPORT INFORMATION
  Report Type: Spontaneous
  Country: US (occurrence: US)
  Receive Date: 20130102
  Receipt Date: 20130102
  Transmission Date: 20140127
  Serious: Yes (Other)
  Sender: FDA-Public Use
  Company Number: US-BAYER-2012-135306

PATIENT
  Sex: Male

DRUGS (1)
  1. ALEVE CAPLET/TABLET,MIDOL EXTENDED RELIEF CAPLET [Suspect]
     Dosage: 2 DF, UNK

REACTIONS (10)
  - Pruritus [None]
  - Dermatitis [None]
  - Inflammation [None]
  - Inflammation [None]
  - Osteitis [None]
  - Neck pain [None]
  - Blood pressure decreased [None]
  - Inflammation [None]
  - Hypersensitivity [None]
  - Visual impairment [None]
